FAERS Safety Report 16471116 (Version 2)
Quarter: 2019Q2

REPORT INFORMATION
  Report Type: Spontaneous
  Country: GB (occurrence: GB)
  Receive Date: 20190624
  Receipt Date: 20190627
  Transmission Date: 20190711
  Serious: Yes (Other)
  Sender: FDA-Public Use
  Company Number: GB-ASTRAZENECA-2019SE54948

PATIENT
  Age: 30 Year
  Sex: Male

DRUGS (2)
  1. PROCYCLIDINE [Suspect]
     Active Substance: PROCYCLIDINE
     Route: 065
  2. SEROQUEL [Suspect]
     Active Substance: QUETIAPINE FUMARATE
     Route: 048

REACTIONS (40)
  - Diabetes mellitus [Unknown]
  - Sleep apnoea syndrome [Unknown]
  - Malaise [Unknown]
  - Tongue biting [Unknown]
  - White blood cell count decreased [Unknown]
  - Weight increased [Unknown]
  - Memory impairment [Unknown]
  - Musculoskeletal stiffness [Unknown]
  - Tachycardia [Unknown]
  - Asthenia [Unknown]
  - Dystonia [Unknown]
  - Accidental overdose [Unknown]
  - Tooth disorder [Unknown]
  - Movement disorder [Unknown]
  - Muscle contractions involuntary [Unknown]
  - Long QT syndrome [Unknown]
  - Psychotic disorder [Unknown]
  - Tardive dyskinesia [Unknown]
  - Blood cholesterol increased [Unknown]
  - Fatigue [Unknown]
  - Anxiety [Unknown]
  - Musculoskeletal stiffness [Unknown]
  - Eye disorder [Unknown]
  - Dizziness [Unknown]
  - Muscle spasms [Unknown]
  - Palpitations [Unknown]
  - Cardiometabolic syndrome [Unknown]
  - Trismus [Unknown]
  - Pain [Unknown]
  - Blood triglycerides increased [Unknown]
  - Pneumonia [Unknown]
  - Sleep disorder [Unknown]
  - Dyspnoea [Unknown]
  - Hepatic enzyme increased [Unknown]
  - Liver disorder [Unknown]
  - Oxygen saturation decreased [Unknown]
  - Pain in jaw [Unknown]
  - Mental disorder [Unknown]
  - Headache [Unknown]
  - Muscle twitching [Unknown]

NARRATIVE: CASE EVENT DATE: 2011
